FAERS Safety Report 9522991 (Version 1)
Quarter: 2013Q1

REPORT INFORMATION
  Report Type: Spontaneous
  Country: US (occurrence: None)
  Receive Date: 20130305
  Receipt Date: 20130305
  Transmission Date: 20140127
  Serious: Yes (Hospitalization)
  Sender: FDA-Public Use
  Company Number: 163-21880-12031904

PATIENT
  Age: 70 Year
  Sex: Female

DRUGS (4)
  1. REVLIMID (LENALIDOMIDE) (25 MILLIGRAM, CAPSULES) [Suspect]
     Indication: PLASMA CELL MYELOMA
     Dosage: X 21
     Route: 048
     Dates: start: 20070601
  2. TORSEMIDE [Concomitant]
  3. PREDNISONE (PREDNISONE) [Concomitant]
  4. Z-PAK (AZITHROMYCIN) [Concomitant]

REACTIONS (2)
  - Bronchitis [None]
  - Sinusitis [None]
